FAERS Safety Report 18432821 (Version 1)
Quarter: 2020Q4

REPORT INFORMATION
  Report Type: Spontaneous
  Country: FR (occurrence: FR)
  Receive Date: 20201027
  Receipt Date: 20201027
  Transmission Date: 20210114
  Serious: Yes (Death, Hospitalization)
  Sender: FDA-Public Use
  Company Number: FR-DRREDDYS-GER/FRA/20/0128206

PATIENT
  Age: 79 Year
  Sex: Female
  Weight: 87 kg

DRUGS (2)
  1. RIFADINE IV 600 MG, POUDRE ET SOLVANT POUR SOLUTION POUR PERFUSION [Suspect]
     Active Substance: RIFAMPIN
     Indication: STAPHYLOCOCCAL INFECTION
     Route: 041
     Dates: start: 20200731, end: 20200810
  2. DAPTOMYCIN. [Suspect]
     Active Substance: DAPTOMYCIN
     Indication: STAPHYLOCOCCAL INFECTION
     Route: 042
     Dates: start: 20200730, end: 20200810

REACTIONS (3)
  - Eosinophilia [Recovered/Resolved]
  - Cholestasis [Not Recovered/Not Resolved]
  - Rash papular [Recovered/Resolved]

NARRATIVE: CASE EVENT DATE: 202008
